FAERS Safety Report 5022179-3 (Version None)
Quarter: 2006Q2

REPORT INFORMATION
  Report Type: 
  Country: None (occurrence: None)
  Receive Date: 20060609
  Receipt Date: 20060602
  Transmission Date: 20061013
  Serious: Yes (Hospitalization)
  Sender: FDA-Public Use
  Company Number: SE-GLAXOSMITHKLINE-B0426466A

PATIENT
  Age: 40 Year
  Sex: Female

DRUGS (2)
  1. PANODIL 500MG TABLETS [Suspect]
     Indication: DRUG USE FOR UNKNOWN INDICATION
     Dosage: 30TAB PER DAY
     Route: 048
     Dates: start: 20060403, end: 20060403
  2. SOBRIL [Suspect]
     Indication: DRUG USE FOR UNKNOWN INDICATION
     Dosage: 30TAB PER DAY
     Route: 048
     Dates: start: 20060403, end: 20060403

REACTIONS (2)
  - DRUG TOXICITY [None]
  - OVERDOSE [None]
